FAERS Safety Report 8814270 (Version 1)
Quarter: 2012Q4

REPORT INFORMATION
  Report Type: Spontaneous
  Country: IT (occurrence: None)
  Receive Date: 20120925
  Receipt Date: 20120925
  Transmission Date: 20130627
  Serious: Yes (Hospitalization)
  Sender: FDA-Public Use
  Company Number: AUR-APL-2012-04008

PATIENT
  Age: 43 Year
  Sex: Male

DRUGS (3)
  1. MIRTAZAPINE [Suspect]
     Route: 048
     Dates: start: 20120908, end: 20120908
  2. CITALOPRAM (CITALOPRAM) [Suspect]
     Route: 048
     Dates: start: 20120908, end: 20120908
  3. EUTIMIL [Suspect]
     Route: 048
     Dates: start: 20120908, end: 20120908

REACTIONS (2)
  - Tachycardia [None]
  - Intentional self-injury [None]
